FAERS Safety Report 5586243-2 (Version None)
Quarter: 2007Q4

REPORT INFORMATION
  Report Type: 
  Country: None (occurrence: None)
  Receive Date: 20071205
  Receipt Date: 20070816
  Transmission Date: 20080405
  Serious: Yes (Other)
  Sender: FDA-Public Use
  Company Number: HQWYE663517AUG07

PATIENT
  Age: 61 Year
  Sex: Female
  Weight: 85.35 kg

DRUGS (2)
  1. EFFEXOR XR [Suspect]
     Indication: DEPRESSION
     Dosage: 75 MG 1X PER 1 DAY, ORAL
     Route: 048
     Dates: start: 20070501, end: 20070501
  2. TRACLEER [Concomitant]

REACTIONS (2)
  - FEELING ABNORMAL [None]
  - HEART RATE INCREASED [None]
